FAERS Safety Report 7759901-9 (Version None)
Quarter: 2011Q3

REPORT INFORMATION
  Report Type: 
  Country: None (occurrence: None)
  Receive Date: 20110919
  Receipt Date: 20110401
  Transmission Date: 20111222
  Serious: Yes (Other)
  Sender: FDA-Public Use
  Company Number: JP-MERCK-1104USA00600

PATIENT
  Age: 44 Year
  Sex: Male

DRUGS (11)
  1. SULFAMETHOXAZOLE [Concomitant]
     Route: 048
     Dates: start: 20100210, end: 20100622
  2. EBUTOL [Concomitant]
     Indication: TUBERCULOSIS
     Route: 048
     Dates: start: 20100303, end: 20101103
  3. MYCOBUTIN [Suspect]
     Indication: TUBERCULOSIS
     Route: 048
     Dates: start: 20100303, end: 20101103
  4. TRUVADA [Concomitant]
     Indication: HIV INFECTION
     Route: 048
     Dates: start: 20100225
  5. PYDOXAL [Concomitant]
     Route: 048
     Dates: start: 20100303, end: 20101103
  6. MYCOBUTIN [Suspect]
     Route: 048
  7. ISENTRESS [Suspect]
     Indication: HIV INFECTION
     Route: 048
     Dates: start: 20100225, end: 20100518
  8. LENDORMIN [Concomitant]
     Route: 048
     Dates: start: 20100122
  9. TOLEDOMIN [Concomitant]
     Route: 048
     Dates: start: 20100218
  10. ISONIAZID [Concomitant]
     Indication: TUBERCULOSIS
     Route: 048
     Dates: start: 20100303, end: 20101103
  11. PYRAZINAMIDE [Concomitant]
     Indication: TUBERCULOSIS
     Route: 048
     Dates: start: 20100303, end: 20101103

REACTIONS (5)
  - HALLUCINATION, AUDITORY [None]
  - PATHOGEN RESISTANCE [None]
  - ANXIETY [None]
  - IRRITABILITY [None]
  - DRUG INTERACTION [None]
